FAERS Safety Report 4376130-X (Version None)
Quarter: 2004Q2

REPORT INFORMATION
  Report Type: 
  Country: None (occurrence: None)
  Receive Date: 20040611
  Receipt Date: 20040602
  Transmission Date: 20050107
  Serious: Yes (Hospitalization)
  Sender: FDA-Public Use
  Company Number: IL-ROCHE-369716

PATIENT
  Age: 24 Year
  Sex: Male
  Weight: 65.4 kg

DRUGS (2)
  1. PEG-INTERFERON ALFA 2A (RO 25-8310) [Suspect]
     Indication: HEPATITIS C
     Dosage: FORM REPORTED AS TAB
     Route: 058
     Dates: start: 20040530, end: 20040530
  2. RIBAVIRIN [Suspect]
     Indication: HEPATITIS C
     Route: 048
     Dates: start: 20040530

REACTIONS (3)
  - NEUTROPHIL COUNT DECREASED [None]
  - PANCYTOPENIA [None]
  - PYREXIA [None]
